FAERS Safety Report 23313405 (Version 1)
Quarter: 2023Q4

REPORT INFORMATION
  Report Type: Spontaneous
  Country: CO (occurrence: CO)
  Receive Date: 20231219
  Receipt Date: 20231219
  Transmission Date: 20240109
  Serious: Yes (Other)
  Sender: FDA-Public Use
  Company Number: CO-BAYER-2023A175603

PATIENT
  Age: 49 Year
  Sex: Female

DRUGS (1)
  1. GADOBUTROL [Suspect]
     Active Substance: GADOBUTROL
     Dosage: UNK
     Dates: start: 20231203, end: 20231203

REACTIONS (5)
  - Pneumonia [Recovered/Resolved]
  - Contrast media allergy [Recovered/Resolved]
  - Cough [Recovered/Resolved]
  - Dyspnoea [Recovered/Resolved]
  - Blood pressure increased [Recovered/Resolved]

NARRATIVE: CASE EVENT DATE: 20231203
